FAERS Safety Report 18092377 (Version 1)
Quarter: 2020Q3

REPORT INFORMATION
  Report Type: Spontaneous
  Country: US (occurrence: US)
  Receive Date: 20200730
  Receipt Date: 20200730
  Transmission Date: 20201103
  Serious: Yes (Other)
  Sender: FDA-Public Use
  Company Number: NVSC2020US212790

PATIENT
  Age: 70 Year
  Sex: Male

DRUGS (4)
  1. PREDNISONE. [Suspect]
     Active Substance: PREDNISONE
     Indication: METASTATIC MALIGNANT MELANOMA
     Dosage: 60 MG
     Route: 065
  2. PREDNISONE. [Suspect]
     Active Substance: PREDNISONE
     Dosage: 40 MG, BID
     Route: 065
  3. PREDNISONE. [Suspect]
     Active Substance: PREDNISONE
     Dosage: 30 MG, BID
     Route: 065
  4. METHOTREXATE. [Suspect]
     Active Substance: METHOTREXATE
     Indication: METASTATIC MALIGNANT MELANOMA
     Dosage: 25 MG, QW
     Route: 065

REACTIONS (3)
  - Product use in unapproved indication [Unknown]
  - Malignant neoplasm progression [Unknown]
  - Metastatic malignant melanoma [Unknown]
